FAERS Safety Report 7713547-7 (Version None)
Quarter: 2011Q3

REPORT INFORMATION
  Report Type: 
  Country: None (occurrence: None)
  Receive Date: 20110826
  Receipt Date: 20110817
  Transmission Date: 20111222
  Serious: Yes (Hospitalization)
  Sender: FDA-Public Use
  Company Number: ES-BAYER-2011-071280

PATIENT
  Age: 80 Year
  Sex: Male
  Weight: 80 kg

DRUGS (9)
  1. OMEPRAZOLE [Concomitant]
     Indication: PROPHYLAXIS
     Dosage: 20 MG, HS
     Route: 048
  2. CARVEDILOL [Concomitant]
     Indication: CARDIAC FAILURE CONGESTIVE
     Dosage: 6.233 MG, TID
     Route: 048
  3. FUROSEMIDE [Concomitant]
     Indication: CARDIAC FAILURE CONGESTIVE
     Dosage: 20 MG, BID
     Route: 048
  4. ENOXAPARIN SODIUM [Interacting]
     Indication: ATRIAL FIBRILLATION
     Dosage: 80 MG, BID
     Route: 058
     Dates: start: 20110112, end: 20110123
  5. CAPTOPRIL [Concomitant]
     Dosage: 50 MG, HS
     Route: 048
  6. ASPIRIN [Suspect]
     Indication: MYOCARDIAL ISCHAEMIA
     Dosage: 100 MG, HS
     Dates: start: 20090101, end: 20110123
  7. LORMETAZEPAM [Concomitant]
     Dosage: UNK
     Route: 048
  8. ATORVASTATIN [Concomitant]
     Indication: DYSLIPIDAEMIA
     Dosage: 80 MG, HS
     Route: 048
  9. NIFEDIPINO [Concomitant]
     Dosage: 10 MG, BID
     Route: 048

REACTIONS (3)
  - RETROPERITONEAL HAEMATOMA [None]
  - HYPOVOLAEMIC SHOCK [None]
  - MONOPARESIS [None]
